FAERS Safety Report 4709706-8 (Version None)
Quarter: 2005Q2

REPORT INFORMATION
  Report Type: 
  Country: None (occurrence: None)
  Receive Date: 20050629
  Receipt Date: 20050509
  Transmission Date: 20051028
  Serious: No
  Sender: FDA-Public Use
  Company Number: 05P-163-0300071-00

PATIENT
  Age: 49 Year
  Weight: 55.7924 kg

DRUGS (1)
  1. HUMIRA [Suspect]
     Indication: RHEUMATOID ARTHRITIS
     Dosage: 40 MG, 1 IN 1 WK, SUCUTANEOUS
     Route: 058
     Dates: start: 20040901

REACTIONS (2)
  - INJECTION SITE HAEMORRHAGE [None]
  - INJECTION SITE RASH [None]
